FAERS Safety Report 20638372 (Version 1)
Quarter: 2022Q1

REPORT INFORMATION
  Report Type: Spontaneous
  Country: US (occurrence: None)
  Receive Date: 20220325
  Receipt Date: 20220325
  Transmission Date: 20220424
  Serious: Yes (Life-Threatening, Hospitalization)
  Sender: FDA-Public Use
  Company Number: 2022A126181

PATIENT
  Sex: Female

DRUGS (3)
  1. QUETIAPINE [Suspect]
     Active Substance: QUETIAPINE
     Dosage: 25 MG PILLS
     Route: 048
  2. GEODON [Suspect]
     Active Substance: ZIPRASIDONE HYDROCHLORIDE\ZIPRASIDONE MESYLATE
     Indication: Antipsychotic therapy
     Dosage: 160MG ; TWO 80 MG TABLETS AT NIGHT
     Route: 048
  3. GEODON [Suspect]
     Active Substance: ZIPRASIDONE HYDROCHLORIDE\ZIPRASIDONE MESYLATE
     Indication: Bipolar I disorder
     Dosage: 160MG ; TWO 80 MG TABLETS AT NIGHT
     Route: 048

REACTIONS (7)
  - Coma [Unknown]
  - Psychotic disorder [Unknown]
  - Depression [Unknown]
  - Mania [Unknown]
  - Mood swings [Unknown]
  - Drug ineffective [Unknown]
  - Fatigue [Unknown]
